FAERS Safety Report 13994741 (Version 5)
Quarter: 2019Q2

REPORT INFORMATION
  Report Type: Spontaneous
  Country: US (occurrence: US)
  Receive Date: 20170921
  Receipt Date: 20190501
  Transmission Date: 20190711
  Serious: Yes (Other)
  Sender: FDA-Public Use
  Company Number: US-BEH-2017083619

PATIENT
  Sex: Female

DRUGS (2)
  1. BERINERT [Suspect]
     Active Substance: HUMAN C1-ESTERASE INHIBITOR
     Indication: HEREDITARY ANGIOEDEMA
     Dosage: 2000 IU, EVERY 24 TO 48 HOURS
     Route: 042
     Dates: start: 20120425
  2. BERINERT [Suspect]
     Active Substance: HUMAN C1-ESTERASE INHIBITOR
     Indication: PROPHYLAXIS
     Dosage: 2000 IU, EVERY 24-48 HOURS
     Route: 042
     Dates: start: 20161107

REACTIONS (6)
  - Genital swelling [Not Recovered/Not Resolved]
  - Hereditary angioedema [Recovered/Resolved]
  - Swelling face [Recovered/Resolved]
  - Abdominal distension [Recovered/Resolved]
  - Drug ineffective for unapproved indication [Not Recovered/Not Resolved]
  - Pharyngeal swelling [Recovered/Resolved]
